FAERS Safety Report 4395000-4 (Version None)
Quarter: 2004Q3

REPORT INFORMATION
  Report Type: 
  Country: None (occurrence: None)
  Receive Date: 20040712
  Receipt Date: 20030305
  Transmission Date: 20050211
  Serious: Yes (Hospitalization)
  Sender: FDA-Public Use
  Company Number: PHHO2003DK03034

PATIENT
  Age: 59 Year
  Sex: Female

DRUGS (1)
  1. TAMOXIFEN CITRATE [Suspect]
     Route: 048
     Dates: start: 20020802, end: 20030518

REACTIONS (4)
  - ARTHRALGIA [None]
  - BONE PAIN [None]
  - PYREXIA [None]
  - SERONEGATIVE ARTHRITIS [None]
